FAERS Safety Report 15110167 (Version 1)
Quarter: 2018Q2

REPORT INFORMATION
  Report Type: Spontaneous
  Country: US (occurrence: US)
  Receive Date: 20180612
  Receipt Date: 20180612
  Transmission Date: 20180711
  Serious: No
  Sender: FDA-Public Use
  Company Number: None

PATIENT
  Age: 82 Year
  Sex: Female

DRUGS (1)
  1. IMATINIB [Suspect]
     Active Substance: IMATINIB
     Indication: LEUKAEMIA
     Route: 048
     Dates: start: 20180124

REACTIONS (5)
  - Constipation [None]
  - Abdominal pain [None]
  - Eye disorder [None]
  - Diarrhoea [None]
  - Vision blurred [None]

NARRATIVE: CASE EVENT DATE: 20180611
